FAERS Safety Report 23554496 (Version 7)
Quarter: 2024Q4

REPORT INFORMATION
  Report Type: Spontaneous
  Country: US (occurrence: US)
  Receive Date: 20240222
  Receipt Date: 20241108
  Transmission Date: 20250115
  Serious: No
  Sender: KARYOPHARM THERAPEUTICS
  Company Number: US-KARYOPHARM-2024KPT000441

PATIENT

DRUGS (11)
  1. XPOVIO [Suspect]
     Active Substance: SELINEXOR
     Indication: Plasma cell myeloma
     Dosage: 100 MG, WEEKLY
     Route: 048
     Dates: start: 20240130
  2. XPOVIO [Suspect]
     Active Substance: SELINEXOR
     Dosage: 200 MG, WEEKLY
     Route: 048
     Dates: start: 2024, end: 2024
  3. XPOVIO [Suspect]
     Active Substance: SELINEXOR
     Dosage: 100 MG, WEEKLY ON DAY 1, 8, 15, 22
     Route: 048
     Dates: start: 202405, end: 2024
  4. XPOVIO [Suspect]
     Active Substance: SELINEXOR
     Dosage: 80 MG, WEEKLY
     Route: 048
     Dates: start: 2024, end: 202408
  5. XPOVIO [Suspect]
     Active Substance: SELINEXOR
     Dosage: 80 MG, DAY 1,8,15,22
     Route: 048
     Dates: start: 20240903
  6. DEXAMETHASONE [Concomitant]
     Active Substance: DEXAMETHASONE
  7. VELCADE [Concomitant]
     Active Substance: BORTEZOMIB
  8. OLANZAPINE [Concomitant]
     Active Substance: OLANZAPINE
  9. ONDANSETRON [Concomitant]
     Active Substance: ONDANSETRON
  10. ACYCLOVIR [Concomitant]
     Active Substance: ACYCLOVIR
  11. ASPIRIN [Concomitant]
     Active Substance: ASPIRIN

REACTIONS (5)
  - COVID-19 [Unknown]
  - Plasma cell myeloma [Unknown]
  - Nausea [Recovering/Resolving]
  - Fatigue [Not Recovered/Not Resolved]
  - Platelet count decreased [Recovering/Resolving]

NARRATIVE: CASE EVENT DATE: 20240101
